FAERS Safety Report 12621571 (Version 1)
Quarter: 2016Q3

REPORT INFORMATION
  Report Type: Spontaneous
  Country: DE (occurrence: DE)
  Receive Date: 20160804
  Receipt Date: 20160804
  Transmission Date: 20161109
  Serious: Yes (Other)
  Sender: FDA-Public Use
  Company Number: DE-TEVA-668134GER

PATIENT
  Age: 43 Year
  Sex: Female
  Weight: 60 kg

DRUGS (1)
  1. SUMATRIPTAN-RATIOPHARM 100 MG FILMTABLETTEN [Suspect]
     Active Substance: SUMATRIPTAN SUCCINATE
     Indication: MIGRAINE
     Dosage: 100 MILLIGRAM DAILY;
     Route: 048
     Dates: start: 20160608, end: 20160611

REACTIONS (4)
  - Drug effect decreased [Unknown]
  - Vomiting [Not Recovered/Not Resolved]
  - Product formulation issue [Unknown]
  - Pain [Not Recovered/Not Resolved]

NARRATIVE: CASE EVENT DATE: 20160608
